FAERS Safety Report 10129193 (Version 1)
Quarter: 2014Q2

REPORT INFORMATION
  Report Type: Spontaneous
  Country: US (occurrence: None)
  Receive Date: 20140424
  Receipt Date: 20140424
  Transmission Date: 20141212
  Serious: No
  Sender: FDA-Public Use
  Company Number: None

PATIENT
  Age: 60 Year
  Sex: Female

DRUGS (1)
  1. NEXAVAR [Suspect]
     Indication: HEPATIC CANCER
     Route: 048
     Dates: start: 20140228

REACTIONS (5)
  - Haemorrhoids [None]
  - Restlessness [None]
  - Anxiety [None]
  - Musculoskeletal pain [None]
  - Adverse drug reaction [None]
